FAERS Safety Report 9705478 (Version 1)
Quarter: 2013Q4

REPORT INFORMATION
  Report Type: Spontaneous
  Country: GB (occurrence: GB)
  Receive Date: 20131122
  Receipt Date: 20131122
  Transmission Date: 20140711
  Serious: Yes (Hospitalization)
  Sender: FDA-Public Use
  Company Number: GB-ACTAVIS-2013-21403

PATIENT
  Age: 54 Year
  Sex: Female

DRUGS (3)
  1. DOCETAXEL (UNKNOWN) [Suspect]
     Indication: PRODUCT USED FOR UNKNOWN INDICATION
     Dosage: UNK
     Route: 065
  2. HERCEPTIN [Suspect]
     Indication: HER-2 POSITIVE BREAST CANCER
     Dosage: 8 MG/KG, 1/ THREE WEEKS; LOADING DOSE
     Route: 042
     Dates: start: 20120920
  3. HERCEPTIN [Suspect]
     Dosage: 6 MG/KG, 1/ THREE WEEKS; DATE OF LAST DOSE PRIOR TO SAE: 01/NOV/2012, MAINTENANCE DOSE
     Route: 042
     Dates: end: 20121130

REACTIONS (2)
  - Pneumonitis [Recovered/Resolved]
  - Pyrexia [Recovered/Resolved]
